FAERS Safety Report 25502481 (Version 1)
Quarter: 2025Q3

REPORT INFORMATION
  Report Type: Spontaneous
  Country: CH (occurrence: CH)
  Receive Date: 20250702
  Receipt Date: 20250702
  Transmission Date: 20251021
  Serious: Yes (Other)
  Sender: SANDOZ
  Company Number: None

PATIENT
  Age: 49 Year
  Sex: Male

DRUGS (1)
  1. PANTOPRAZOLE SODIUM [Suspect]
     Active Substance: PANTOPRAZOLE SODIUM
     Indication: Product used for unknown indication
     Dosage: 40 MG, QD,UNKNOWN (NOS)
     Route: 048
     Dates: start: 20250525, end: 20250527

REACTIONS (1)
  - Cutaneous vasculitis [Recovered/Resolved]

NARRATIVE: CASE EVENT DATE: 20250526
